FAERS Safety Report 5061808-5 (Version None)
Quarter: 2006Q3

REPORT INFORMATION
  Report Type: 
  Country: None (occurrence: None)
  Receive Date: 20060726
  Receipt Date: 20060714
  Transmission Date: 20061208
  Serious: Yes (Other)
  Sender: FDA-Public Use
  Company Number: US-JNJFOC-20060703524

PATIENT
  Sex: Male
  Weight: 113.4 kg

DRUGS (6)
  1. DURAGESIC-100 [Suspect]
     Indication: CANCER PAIN
     Dosage: TWO-100 UG PATCHES
     Route: 062
  2. AMITRYPTYLINE [Concomitant]
     Indication: DEPRESSION
     Route: 048
  3. ACTIQ [Concomitant]
     Indication: BREAKTHROUGH PAIN
     Route: 048
  4. COMPAZINE [Concomitant]
     Indication: NAUSEA
     Route: 048
  5. ACIPHEX [Concomitant]
     Indication: HYPERCHLORHYDRIA
     Route: 048
  6. LUNESTA [Concomitant]
     Indication: ANXIETY
     Route: 048

REACTIONS (1)
  - CARCINOID TUMOUR [None]
